FAERS Safety Report 8416585-4 (Version None)
Quarter: 2012Q2

REPORT INFORMATION
  Report Type: 
  Country: None (occurrence: None)
  Receive Date: 20120606
  Receipt Date: 20120530
  Transmission Date: 20120825
  Serious: Yes (Hospitalization)
  Sender: FDA-Public Use
  Company Number: US-ROCHE-1067657

PATIENT
  Sex: Male
  Weight: 79.5 kg

DRUGS (14)
  1. SERTRALINE HYDROCHLORIDE [Concomitant]
  2. GABAPENTIN [Concomitant]
  3. ZELBORAF [Suspect]
     Indication: PRODUCT USED FOR UNKNOWN INDICATION
     Route: 048
     Dates: start: 20120428
  4. AMLODIPINE [Concomitant]
  5. MORPHINE SULFATE [Concomitant]
  6. DIAZEPAM [Concomitant]
  7. ALLOPURINOL [Concomitant]
  8. TERAZOSIN HCL [Concomitant]
  9. PROCHLORPERAZINE [Concomitant]
     Indication: NAUSEA
  10. METOCLOPRAMIDE [Concomitant]
  11. CELEBREX [Concomitant]
  12. OMEPRAZOLE [Concomitant]
  13. MORPHINE SULFATE [Concomitant]
     Indication: PAIN
  14. ZELBORAF [Concomitant]

REACTIONS (7)
  - SOMNOLENCE [None]
  - PNEUMONITIS [None]
  - ALTERED STATE OF CONSCIOUSNESS [None]
  - ANAEMIA [None]
  - FATIGUE [None]
  - ENURESIS [None]
  - LETHARGY [None]
